FAERS Safety Report 18234198 (Version 2)
Quarter: 2020Q4

REPORT INFORMATION
  Report Type: Spontaneous
  Country: US (occurrence: US)
  Receive Date: 20200904
  Receipt Date: 20201002
  Transmission Date: 20210113
  Serious: No
  Sender: FDA-Public Use
  Company Number: US-APOTEX-2020AP015954

PATIENT
  Sex: Female

DRUGS (1)
  1. FLUTICASONE PROPIONATE NASAL SPRAY [Suspect]
     Active Substance: FLUTICASONE PROPIONATE
     Indication: PRODUCT USED FOR UNKNOWN INDICATION
     Dosage: UNK UNK, QD (2 SPRAYS IN EACH NOSTRIL))
     Route: 045
     Dates: start: 2020

REACTIONS (4)
  - Nausea [Unknown]
  - Rhinorrhoea [Unknown]
  - Product odour abnormal [Unknown]
  - Cough [Unknown]

NARRATIVE: CASE EVENT DATE: 2020
